FAERS Safety Report 20834438 (Version 3)
Quarter: 2022Q2

REPORT INFORMATION
  Report Type: Spontaneous
  Country: US (occurrence: US)
  Receive Date: 20220516
  Receipt Date: 20220617
  Transmission Date: 20220720
  Serious: Yes (Hospitalization)
  Sender: FDA-Public Use
  Company Number: US-ELI_LILLY_AND_COMPANY-US202205002057

PATIENT
  Age: 58 Year
  Sex: Female
  Weight: 51.8 kg

DRUGS (2)
  1. FLORBETAPIR [Suspect]
     Active Substance: FLORBETAPIR
     Indication: Dementia Alzheimer^s type
     Dosage: 10.028 MCI, SINGLE
     Route: 042
     Dates: start: 20220415, end: 20220415
  2. LITHIUM [Concomitant]
     Active Substance: LITHIUM
     Indication: Bipolar II disorder
     Dosage: 20 MG, DAILY
     Route: 048
     Dates: start: 2012

REACTIONS (1)
  - Borderline personality disorder [Recovered/Resolved]

NARRATIVE: CASE EVENT DATE: 20220416
